FAERS Safety Report 25759835 (Version 1)
Quarter: 2025Q3

REPORT INFORMATION
  Report Type: Spontaneous
  Country: CN (occurrence: CN)
  Receive Date: 20250904
  Receipt Date: 20250904
  Transmission Date: 20251021
  Serious: Yes (Hospitalization)
  Sender: ACCORD
  Company Number: None

PATIENT
  Age: 37 Year
  Sex: Female
  Weight: 45 kg

DRUGS (6)
  1. TRASTUZUMAB [Suspect]
     Active Substance: TRASTUZUMAB
     Indication: Gastric cancer
     Dosage: STRENGTH: 150 MILLIGRAM, IV DRIP
     Route: 042
     Dates: start: 20250722, end: 20250722
  2. CISPLATIN [Suspect]
     Active Substance: CISPLATIN
     Indication: Gastric cancer
     Dosage: 20 MILLIGRAM, QD, IV DRIP
     Route: 042
     Dates: start: 20250723, end: 20250724
  3. SINTILIMAB [Suspect]
     Active Substance: SINTILIMAB
     Indication: Gastric cancer
     Dosage: IV DRIP
     Route: 042
     Dates: start: 20250722, end: 20250722
  4. PACLITAXEL [Suspect]
     Active Substance: PACLITAXEL
     Indication: Gastric cancer
     Dosage: 0.1 GRAM, QD, IV DRIP
     Route: 042
     Dates: start: 20250723, end: 20250723
  5. CISPLATIN [Suspect]
     Active Substance: CISPLATIN
     Indication: Gastric cancer
     Dosage: 20 MILLIGRAM, QD, IV DRIP
     Route: 042
     Dates: start: 20250727, end: 20250728
  6. PACLITAXEL [Suspect]
     Active Substance: PACLITAXEL
     Indication: Gastric cancer
     Dosage: 0.1 GRAM, QD, IV DRIP
     Route: 042
     Dates: start: 20250727, end: 20250728

REACTIONS (1)
  - Myelosuppression [Recovering/Resolving]

NARRATIVE: CASE EVENT DATE: 20250813
